FAERS Safety Report 4485288-3 (Version None)
Quarter: 2004Q4

REPORT INFORMATION
  Report Type: 
  Country: None (occurrence: None)
  Receive Date: 20041022
  Receipt Date: 20041022
  Transmission Date: 20050328
  Serious: Yes (Other)
  Sender: FDA-Public Use
  Company Number: None

PATIENT
  Age: 48 Year
  Sex: Female
  Weight: 68.4932 kg

DRUGS (1)
  1. CLINDAMYCIN HCL [Suspect]
     Indication: TOOTH ABSCESS
     Dosage: ORAL
     Route: 048
     Dates: start: 20040915, end: 20041001

REACTIONS (3)
  - PAIN OF SKIN [None]
  - PRURITUS [None]
  - URTICARIA [None]
